FAERS Safety Report 4580259-0 (Version None)
Quarter: 2005Q1

REPORT INFORMATION
  Report Type: 
  Country: None (occurrence: None)
  Receive Date: 20050214
  Receipt Date: 20050202
  Transmission Date: 20050727
  Serious: Yes (Death)
  Sender: FDA-Public Use
  Company Number: FR-GLAXOSMITHKLINE-B0369726A

PATIENT
  Age: 46 Year
  Sex: Male
  Weight: 61 kg

DRUGS (10)
  1. ZOPHREN [Suspect]
     Indication: PROPHYLAXIS OF NAUSEA AND VOMITING
     Route: 042
     Dates: start: 20050105, end: 20050106
  2. CISPLATIN [Suspect]
     Indication: SQUAMOUS CELL CARCINOMA
     Dosage: 160MG CYCLIC
     Route: 042
     Dates: start: 20050106, end: 20050106
  3. OMEPRAZOLE [Suspect]
     Dosage: 40MG CYCLIC
     Route: 042
     Dates: start: 20050106, end: 20050106
  4. LOVENOX [Suspect]
     Dosage: 40MG PER DAY
     Route: 058
     Dates: start: 20041221, end: 20050106
  5. GEMZAR [Suspect]
     Indication: SQUAMOUS CELL CARCINOMA
     Dosage: 2000MG PER DAY
     Route: 042
     Dates: start: 20050105, end: 20050105
  6. KETEK [Suspect]
     Indication: PNEUMONIA
     Dosage: 800MG PER DAY
     Route: 048
     Dates: start: 20041221, end: 20050105
  7. SURBRONC [Concomitant]
     Indication: PNEUMONIA
     Route: 065
     Dates: start: 20041221, end: 20050105
  8. MEDROL [Concomitant]
     Indication: PNEUMONIA
     Route: 065
     Dates: start: 20041221, end: 20050106
  9. ETHYOL [Concomitant]
     Indication: SQUAMOUS CELL CARCINOMA
     Dosage: 1500MG PER DAY
     Route: 042
     Dates: start: 20050106, end: 20050106
  10. PRIMPERAN INJ [Concomitant]
     Dosage: 2AMP PER DAY
     Route: 042
     Dates: start: 20041223, end: 20041223

REACTIONS (3)
  - HEPATIC FAILURE [None]
  - HEPATITIS CHOLESTATIC [None]
  - HEPATOCELLULAR DAMAGE [None]
